FAERS Safety Report 23299998 (Version 1)
Quarter: 2023Q4

REPORT INFORMATION
  Report Type: Spontaneous
  Country: AU (occurrence: AU)
  Receive Date: 20231215
  Receipt Date: 20231215
  Transmission Date: 20240110
  Serious: Yes (Other)
  Sender: FDA-Public Use
  Company Number: None

PATIENT
  Age: 40 Year
  Sex: Male

DRUGS (5)
  1. MIRTAZAPINE [Suspect]
     Active Substance: MIRTAZAPINE
     Indication: Temporal lobe epilepsy
     Dosage: 15 MILLIGRAM, 1 DAY
  2. LACOSAMIDE [Suspect]
     Active Substance: LACOSAMIDE
     Indication: Temporal lobe epilepsy
     Dosage: 400 MILLIGRAM, 1 DAY
  3. PREGABALIN [Suspect]
     Active Substance: PREGABALIN
     Indication: Temporal lobe epilepsy
     Dosage: 300 MILLIGRAM, 1 DAY
  4. VALPROIC ACID [Suspect]
     Active Substance: VALPROIC ACID
     Indication: Temporal lobe epilepsy
     Dosage: 2 GRAM, 1 DAY
  5. ZONISAMIDE [Suspect]
     Active Substance: ZONISAMIDE
     Indication: Temporal lobe epilepsy
     Dosage: 200 MILLIGRAM, 1 DAY

REACTIONS (5)
  - Automatism [Unknown]
  - Behaviour disorder [Unknown]
  - Drug ineffective [Unknown]
  - Off label use [Unknown]
  - Seizure [Unknown]
